FAERS Safety Report 10684943 (Version 2)
Quarter: 2015Q1

REPORT INFORMATION
  Report Type: Report from Study
  Country: DE (occurrence: DE)
  Receive Date: 20141231
  Receipt Date: 20150121
  Transmission Date: 20150720
  Serious: No
  Sender: FDA-Public Use
  Company Number: PHHY2014DE168090

PATIENT
  Age: 87 Year
  Sex: Female

DRUGS (7)
  1. LOSARTAN COMP CT [Concomitant]
     Dosage: 1 DF (100MG/25MG)
  2. ULTIBRO [Suspect]
     Active Substance: GLYCOPYRRONIUM\INDACATEROL
     Indication: CHRONIC OBSTRUCTIVE PULMONARY DISEASE
     Dosage: 1 DF (85/43UG), QD
     Route: 055
     Dates: start: 20140505
  3. LOSARTAN COMP [Concomitant]
     Indication: PRODUCT USED FOR UNKNOWN INDICATION
     Dosage: 1 DF (50MG/12.5MG)
     Route: 065
  4. SALBUHEXAL [Suspect]
     Active Substance: ALBUTEROL
     Indication: PRODUCT USED FOR UNKNOWN INDICATION
     Dosage: AS NEEDED, QD
     Route: 055
     Dates: start: 200809
  5. AMLODIPINE [Concomitant]
     Active Substance: AMLODIPINE BESYLATE
     Indication: PRODUCT USED FOR UNKNOWN INDICATION
     Dosage: 5 MG, UNK
     Route: 065
  6. LOSARTAN COMP CT [Concomitant]
     Dosage: 1 DF (100MG/12.5MG)
     Route: 065
  7. AMLODIPINE [Concomitant]
     Active Substance: AMLODIPINE BESYLATE
     Dosage: 10 MG, UNK
     Route: 065

REACTIONS (2)
  - PO2 decreased [Unknown]
  - Nasopharyngitis [Recovering/Resolving]

NARRATIVE: CASE EVENT DATE: 20141205
